FAERS Safety Report 17443938 (Version 1)
Quarter: 2020Q1

REPORT INFORMATION
  Report Type: Spontaneous
  Country: US (occurrence: US)
  Receive Date: 20200220
  Receipt Date: 20200220
  Transmission Date: 20200409
  Serious: Yes (Other)
  Sender: FDA-Public Use
  Company Number: None

PATIENT
  Age: 73 Year
  Sex: Male
  Weight: 126.1 kg

DRUGS (1)
  1. NIVOLUMAB [Suspect]
     Active Substance: NIVOLUMAB
     Indication: METASTATIC RENAL CELL CARCINOMA
     Dosage: ?          OTHER FREQUENCY:EVERY THREE WEEKS;?
     Route: 041
     Dates: start: 20200218, end: 20200218

REACTIONS (4)
  - Dyspnoea [None]
  - Cyanosis [None]
  - Back pain [None]
  - Chest discomfort [None]

NARRATIVE: CASE EVENT DATE: 20200218
